FAERS Safety Report 5910534-6 (Version None)
Quarter: 2008Q4

REPORT INFORMATION
  Report Type: 
  Country: None (occurrence: None)
  Receive Date: 20081007
  Receipt Date: 20080306
  Transmission Date: 20090506
  Serious: No
  Sender: FDA-Public Use
  Company Number: US-ASTRAZENECA-2008UW04140

PATIENT
  Age: 71 Year
  Sex: Female

DRUGS (6)
  1. ARIMDEX [Suspect]
     Indication: BREAST CANCER FEMALE
     Dosage: 1 MG
     Route: 048
     Dates: start: 20061116
  2. ZOLOFT [Concomitant]
  3. LORAZEPAM [Concomitant]
  4. ASPIRIN [Concomitant]
  5. AXID [Concomitant]
  6. BONIVA [Concomitant]

REACTIONS (10)
  - ALOPECIA [None]
  - ANXIETY [None]
  - ARTHROPATHY [None]
  - CHEST PAIN [None]
  - CHILLS [None]
  - COUGH [None]
  - DEPRESSION [None]
  - HOT FLUSH [None]
  - MOOD ALTERED [None]
  - NAUSEA [None]
